FAERS Safety Report 4767904-1 (Version None)
Quarter: 2005Q3

REPORT INFORMATION
  Report Type: 
  Country: None (occurrence: None)
  Receive Date: 20050912
  Receipt Date: 20050826
  Transmission Date: 20060218
  Serious: Yes (Other)
  Sender: FDA-Public Use
  Company Number: EM2005-0443

PATIENT

DRUGS (2)
  1. PROLEUKIN [Suspect]
     Indication: HIV INFECTION
     Dosage: 12 MIU/DAY X 3 CYCLES, CONT IV INFUS
     Route: 042
  2. ANTIRETROVIRALS [Suspect]
     Indication: HIV INFECTION
     Dosage: QD FOR THREE CYCLES, UNKNOWN

REACTIONS (1)
  - APPENDICITIS [None]
